FAERS Safety Report 23790792 (Version 1)
Quarter: 2024Q2

REPORT INFORMATION
  Report Type: Spontaneous
  Country: PL (occurrence: PL)
  Receive Date: 20240427
  Receipt Date: 20240427
  Transmission Date: 20240716
  Serious: Yes (Hospitalization)
  Sender: FDA-Public Use
  Company Number: None

PATIENT
  Age: 56 Year
  Sex: Female
  Weight: 64 kg

DRUGS (4)
  1. SERTRALINE [Suspect]
     Active Substance: SERTRALINE HYDROCHLORIDE
     Indication: Product used for unknown indication
     Dosage: ON THE MORNING, DOSAGE FORM: TABLET
     Route: 048
     Dates: start: 20201230, end: 20210104
  2. OMEPRAZOLE [Suspect]
     Active Substance: OMEPRAZOLE
     Indication: Product used for unknown indication
     Dosage: DOSAGE FORM; TABLET
     Route: 048
     Dates: start: 20201228, end: 20210104
  3. CELECOXIB [Suspect]
     Active Substance: CELECOXIB
     Indication: Product used for unknown indication
     Dosage: DOSAGE FORM :TABLET
     Route: 048
     Dates: start: 20201229
  4. ENALAPRIL [Suspect]
     Active Substance: ENALAPRIL
     Indication: Product used for unknown indication
     Dosage: DOSAGE FORM :TABLET
     Route: 048
     Dates: start: 20180110

REACTIONS (2)
  - Eating disorder [Not Recovered/Not Resolved]
  - Oral discomfort [Not Recovered/Not Resolved]
